FAERS Safety Report 9648127 (Version 13)
Quarter: 2016Q1

REPORT INFORMATION
  Report Type: Report from Study
  Country: CA (occurrence: CA)
  Receive Date: 20131028
  Receipt Date: 20160224
  Transmission Date: 20160526
  Serious: Yes (Other)
  Sender: FDA-Public Use
  Company Number: PHHY2013CA051709

PATIENT
  Age: 73 Year
  Sex: Male

DRUGS (3)
  1. SANDOSTATIN LAR DEPOT [Suspect]
     Active Substance: OCTREOTIDE ACETATE
     Indication: NEUROENDOCRINE TUMOUR
     Dosage: 30 MG, QMO (EVERY 4 WEEKS)
     Route: 030
     Dates: start: 20130510
  2. SANDOSTATIN [Suspect]
     Active Substance: OCTREOTIDE ACETATE
     Dosage: 100 UG, TID (FOR 2 DAYS)
     Route: 058
     Dates: start: 20130506, end: 20130507
  3. SANDOSTATIN [Suspect]
     Active Substance: OCTREOTIDE ACETATE
     Indication: NEUROENDOCRINE TUMOUR
     Dosage: 100 UG, TID
     Route: 058
     Dates: start: 20130504, end: 20130506

REACTIONS (20)
  - Headache [Unknown]
  - Blood pressure increased [Not Recovered/Not Resolved]
  - Nervousness [Unknown]
  - Malignant melanoma [Unknown]
  - Full blood count decreased [Unknown]
  - Macular degeneration [Recovering/Resolving]
  - Stress [Unknown]
  - Bronchitis [Recovering/Resolving]
  - Second primary malignancy [Unknown]
  - Gingivitis [Unknown]
  - Eye swelling [Unknown]
  - Oropharyngeal pain [Recovering/Resolving]
  - Hypertension [Unknown]
  - Pain in extremity [Unknown]
  - Hepatic lesion [Unknown]
  - Malaise [Unknown]
  - Blood pressure systolic increased [Unknown]
  - Tooth loss [Unknown]
  - Limb discomfort [Recovering/Resolving]
  - Osteoarthritis [Recovering/Resolving]

NARRATIVE: CASE EVENT DATE: 20130805
